FAERS Safety Report 6199442-6 (Version None)
Quarter: 2009Q2

REPORT INFORMATION
  Report Type: 
  Country: None (occurrence: None)
  Receive Date: 20090519
  Receipt Date: 20090511
  Transmission Date: 20091009
  Serious: Yes (Death)
  Sender: FDA-Public Use
  Company Number: 270023

PATIENT
  Age: 59 Year
  Sex: Male

DRUGS (9)
  1. FLUDARABINE PHOSPHATE [Suspect]
     Indication: ANGIOIMMUNOBLASTIC T-CELL LYMPHOMA
     Dosage: 25 MG/M2, UNKNOWN, UNKNOWN
  2. ALEMTUZUMAB [Suspect]
     Indication: ANGIOIMMUNOBLASTIC T-CELL LYMPHOMA
     Dosage: 3 MG D1, 10 MG D2, 30 MG D3 IN CYCLE 1, 10 MG DL, 30 MG D2, 3 IN CYCLE 2 (UNKNOWN)
  3. CYCLOPHOSPHAMIDE [Concomitant]
  4. DOXORUBICIN HCL [Concomitant]
  5. VINCRISTINE [Concomitant]
  6. PREDNISONE [Concomitant]
  7. GANCICLOVIR [Concomitant]
  8. CORTRIMOXAZOLE [Concomitant]
  9. COMB. OF DRUG FOR TREATMENT OF TUBERCULOSIS [Concomitant]

REACTIONS (8)
  - ABDOMINAL PAIN UPPER [None]
  - CYTOMEGALOVIRUS CHORIORETINITIS [None]
  - DISSEMINATED TUBERCULOSIS [None]
  - DUODENAL ULCER [None]
  - EPSTEIN-BARR VIRUS INFECTION [None]
  - FEBRILE NEUTROPENIA [None]
  - PANCYTOPENIA [None]
  - PNEUMOCYSTIS JIROVECI PNEUMONIA [None]
